FAERS Safety Report 16308783 (Version 6)
Quarter: 2019Q4

REPORT INFORMATION
  Report Type: Spontaneous
  Country: US (occurrence: US)
  Receive Date: 20190514
  Receipt Date: 20191105
  Transmission Date: 20200122
  Serious: Yes (Hospitalization, Other)
  Sender: FDA-Public Use
  Company Number: US-PFIZER INC-2019198150

PATIENT
  Age: 62 Year
  Sex: Female
  Weight: 68.4 kg

DRUGS (8)
  1. FLUOXETINE [Concomitant]
     Active Substance: FLUOXETINE HYDROCHLORIDE
     Indication: ANXIETY
     Dosage: UNK UNK, 1X/DAY
  2. METOPROLOL XL [Concomitant]
     Active Substance: METOPROLOL SUCCINATE
     Indication: CARDIAC DISORDER
     Dosage: UNK UNK, 1X/DAY
  3. DEXILANT [Concomitant]
     Active Substance: DEXLANSOPRAZOLE
     Indication: GASTRIC DISORDER
     Dosage: UNK UNK, 1X/DAY
  4. ASPIRIN [ACETYLSALICYLIC ACID] [Concomitant]
     Active Substance: ASPIRIN
     Indication: CARDIAC DISORDER
     Dosage: UNK UNK, 1X/DAY
  5. LYRICA [Suspect]
     Active Substance: PREGABALIN
     Indication: FIBROMYALGIA
     Dosage: 150 MG, 2X/DAY [TWICE A DAY]
     Route: 048
     Dates: start: 201706
  6. SINGULAIR [Concomitant]
     Active Substance: MONTELUKAST SODIUM
     Indication: SINUS DISORDER
     Dosage: UNK UNK, 1X/DAY
  7. DIOVAN [Concomitant]
     Active Substance: VALSARTAN
     Indication: CARDIAC DISORDER
     Dosage: UNK UNK, 1X/DAY
  8. LYRICA [Suspect]
     Active Substance: PREGABALIN
     Dosage: 150 MG, 2X/DAY [TWICE A DAY]
     Route: 048
     Dates: end: 20190502

REACTIONS (14)
  - Pain [Recovered/Resolved]
  - Influenza like illness [Recovered/Resolved]
  - Cold sweat [Recovered/Resolved]
  - Feeling abnormal [Recovered/Resolved]
  - Nausea [Recovered/Resolved]
  - Withdrawal syndrome [Recovered/Resolved]
  - Pruritus [Recovered/Resolved]
  - Prescription drug used without a prescription [Unknown]
  - Chills [Recovered/Resolved]
  - Nervousness [Recovered/Resolved]
  - Formication [Recovered/Resolved]
  - Headache [Recovered/Resolved]
  - Somnolence [Recovered/Resolved]
  - Hyperhidrosis [Recovered/Resolved]

NARRATIVE: CASE EVENT DATE: 201905
